FAERS Safety Report 8351566 (Version 6)
Quarter: 2014Q1

REPORT INFORMATION
  Report Type: Spontaneous
  Country: CA (occurrence: CA)
  Receive Date: 20120124
  Receipt Date: 20140307
  Transmission Date: 20141002
  Serious: Yes (Other)
  Sender: FDA-Public Use
  Company Number: CA-ROCHE-1032037

PATIENT
  Age: 62 Year
  Sex: Female

DRUGS (4)
  1. XOLAIR [Suspect]
     Indication: ASTHMA
     Route: 058
     Dates: start: 20091209
  2. ADVAIR [Concomitant]
  3. QVAR [Concomitant]
     Route: 065
  4. VENTOLIN [Concomitant]

REACTIONS (13)
  - Arrhythmia [Unknown]
  - Tachycardia [Unknown]
  - Dyspnoea [Unknown]
  - Dizziness [Unknown]
  - Visual impairment [Unknown]
  - Palpitations [Unknown]
  - Fatigue [Unknown]
  - Hot flush [Unknown]
  - Headache [Unknown]
  - Productive cough [Unknown]
  - Blood pressure increased [Unknown]
  - Blood pressure fluctuation [Recovering/Resolving]
  - Hypertension [Recovered/Resolved]
